FAERS Safety Report 8557615-9 (Version None)
Quarter: 2012Q3

REPORT INFORMATION
  Report Type: 
  Country: None (occurrence: None)
  Receive Date: 20120801
  Receipt Date: 20120723
  Transmission Date: 20120928
  Serious: Yes (Hospitalization, Other)
  Sender: FDA-Public Use
  Company Number: US-ASTRAZENECA-2011SE51601

PATIENT
  Age: 53 Year
  Sex: Female

DRUGS (2)
  1. TOPROL-XL [Suspect]
     Route: 048
     Dates: start: 20110301
  2. METOPROLOL TARTRATE [Suspect]
     Route: 065

REACTIONS (12)
  - DEVICE MALFUNCTION [None]
  - ARRHYTHMIA [None]
  - HYPERVENTILATION [None]
  - OSTEOMYELITIS [None]
  - EXTRASYSTOLES [None]
  - VENTRICULAR FAILURE [None]
  - LIMB INJURY [None]
  - ATRIAL FLUTTER [None]
  - CARDIAC FAILURE CONGESTIVE [None]
  - FALL [None]
  - OEDEMA PERIPHERAL [None]
  - INTERCEPTED DRUG DISPENSING ERROR [None]
